FAERS Safety Report 9726798 (Version 1)
Quarter: 2013Q4

REPORT INFORMATION
  Report Type: Spontaneous
  Country: US (occurrence: US)
  Receive Date: 20131203
  Receipt Date: 20131203
  Transmission Date: 20140711
  Serious: No
  Sender: FDA-Public Use
  Company Number: US-NOVEN-13US006320

PATIENT
  Sex: Male

DRUGS (5)
  1. FENTANYL [Suspect]
     Indication: BLADDER CANCER
     Dosage: 100 UG/HR, UNK
     Route: 062
  2. FENTANYL [Suspect]
     Indication: BRAIN CANCER METASTATIC
     Dosage: 50 UG/HR, UNK
     Route: 062
  3. FENTANYL [Suspect]
     Indication: SYSTEMIC LUPUS ERYTHEMATOSUS
     Dosage: 75 UG/HR, UNK
     Route: 062
  4. FENTANYL [Suspect]
     Indication: PROSTATE CANCER
  5. FENTANYL [Suspect]
     Indication: BONE CANCER

REACTIONS (4)
  - Inadequate analgesia [Unknown]
  - Drug dose omission [Unknown]
  - Drug administration error [Not Recovered/Not Resolved]
  - Product quality issue [Not Recovered/Not Resolved]
